FAERS Safety Report 6872695-4 (Version None)
Quarter: 2010Q3

REPORT INFORMATION
  Report Type: 
  Country: None (occurrence: None)
  Receive Date: 20100723
  Receipt Date: 20081027
  Transmission Date: 20110219
  Serious: No
  Sender: FDA-Public Use
  Company Number: US-PFIZER INC-2008090846

PATIENT
  Sex: Male
  Weight: 79.5 kg

DRUGS (4)
  1. CHANTIX [Suspect]
     Indication: SMOKING CESSATION THERAPY
     Dates: start: 20081001, end: 20081001
  2. LIPITOR [Concomitant]
  3. VALSARTAN [Concomitant]
  4. VITAMINS [Concomitant]

REACTIONS (2)
  - INSOMNIA [None]
  - NIGHTMARE [None]
